FAERS Safety Report 5623823-X (Version None)
Quarter: 2008Q1

REPORT INFORMATION
  Report Type: 
  Country: None (occurrence: None)
  Receive Date: 20080207
  Receipt Date: 20080129
  Transmission Date: 20080703
  Serious: Yes (Hospitalization)
  Sender: FDA-Public Use
  Company Number: 20084599

PATIENT
  Sex: Male

DRUGS (1)
  1. LIORESAL [Suspect]
     Indication: MUSCLE SPASTICITY
     Dosage: 80 MCG, DAILY, INTRATHECAL
     Route: 037

REACTIONS (5)
  - BLOOD PRESSURE ORTHOSTATIC ABNORMAL [None]
  - HEADACHE [None]
  - IMPAIRED HEALING [None]
  - INTRACRANIAL HYPOTENSION [None]
  - PANIC ATTACK [None]
